FAERS Safety Report 7352752-9 (Version None)
Quarter: 2011Q1

REPORT INFORMATION
  Report Type: 
  Country: None (occurrence: None)
  Receive Date: 20110315
  Receipt Date: 20110303
  Transmission Date: 20110831
  Serious: Yes (Other)
  Sender: FDA-Public Use
  Company Number: US-ELI_LILLY_AND_COMPANY-US201103002261

PATIENT
  Sex: Female

DRUGS (4)
  1. LEXAPRO [Concomitant]
  2. STRATTERA [Suspect]
     Dosage: 60 MG, UNK
     Dates: start: 20110210
  3. RISPERDAL [Concomitant]
  4. ADDERALL 10 [Concomitant]

REACTIONS (1)
  - ERYTHEMA MULTIFORME [None]
